FAERS Safety Report 6271120-4 (Version None)
Quarter: 2009Q3

REPORT INFORMATION
  Report Type: 
  Country: None (occurrence: None)
  Receive Date: 20090716
  Receipt Date: 20090708
  Transmission Date: 20100115
  Serious: Yes (Hospitalization)
  Sender: FDA-Public Use
  Company Number: IL-AMGEN-US356163

PATIENT
  Age: 29 Week

DRUGS (2)
  1. ENBREL [Suspect]
     Indication: PSORIATIC ARTHROPATHY
     Dosage: 25 MG, FREQUENCY UNKNOWN
     Route: 064
  2. IRON [Concomitant]
     Indication: MEDICAL DIET
     Dosage: UNKNOWN
     Route: 064

REACTIONS (2)
  - MECHANICAL VENTILATION [None]
  - PREMATURE BABY [None]
